FAERS Safety Report 16617683 (Version 1)
Quarter: 2019Q3

REPORT INFORMATION
  Report Type: Spontaneous
  Country: NL (occurrence: NL)
  Receive Date: 20190723
  Receipt Date: 20190723
  Transmission Date: 20191004
  Serious: Yes (Death)
  Sender: FDA-Public Use
  Company Number: NL-TEVA-2019-NL-1081004

PATIENT
  Age: 50 Year
  Sex: Male
  Weight: 70 kg

DRUGS (4)
  1. OXAZEPAM ACCORD 10MG [Concomitant]
     Dates: start: 20170622
  2. ZOPICLON PCH 7,5 MG [Concomitant]
     Dates: start: 20170626
  3. VENLAFAXINE [Suspect]
     Active Substance: VENLAFAXINE HYDROCHLORIDE
     Indication: PRODUCT USED FOR UNKNOWN INDICATION
     Dosage: 1X
     Dates: start: 20050101
  4. TEMAZEPAM TEVA 10 MG [Concomitant]
     Dates: start: 20170628

REACTIONS (1)
  - Completed suicide [Fatal]

NARRATIVE: CASE EVENT DATE: 20170730
